FAERS Safety Report 4590895-3 (Version None)
Quarter: 2005Q1

REPORT INFORMATION
  Report Type: 
  Country: None (occurrence: None)
  Receive Date: 20050225
  Receipt Date: 20041230
  Transmission Date: 20050727
  Serious: No
  Sender: FDA-Public Use
  Company Number: US-GLAXOSMITHKLINE-A0538848A

PATIENT
  Age: 42 Year
  Sex: Male
  Weight: 80.4 kg

DRUGS (5)
  1. ZIAGEN [Suspect]
     Indication: HIV INFECTION
     Dosage: 600MG PER DAY
     Route: 048
     Dates: start: 20041215, end: 20041229
  2. TRUVADA [Concomitant]
  3. REYATAZ [Concomitant]
  4. NORVIR [Concomitant]
  5. DAPSONE [Concomitant]

REACTIONS (6)
  - CHILLS [None]
  - DEHYDRATION [None]
  - DYSPNOEA [None]
  - FATIGUE [None]
  - HYPERSENSITIVITY [None]
  - PYREXIA [None]
